FAERS Safety Report 5627749-7 (Version None)
Quarter: 2008Q1

REPORT INFORMATION
  Report Type: 
  Country: None (occurrence: None)
  Receive Date: 20080215
  Receipt Date: 20080211
  Transmission Date: 20080703
  Serious: Yes (Disabling)
  Sender: FDA-Public Use
  Company Number: A0705563A

PATIENT
  Age: 60 Year
  Sex: Male
  Weight: 86.4 kg

DRUGS (6)
  1. PAXIL [Suspect]
     Indication: DEPRESSION
     Route: 048
  2. NO CONCURRENT MEDICATION [Concomitant]
  3. PROTONIX [Concomitant]
  4. VYTORIN [Concomitant]
  5. DETROL LA [Concomitant]
  6. ALLEGRA D 24 HOUR [Concomitant]

REACTIONS (3)
  - DRY MOUTH [None]
  - DYSKINESIA [None]
  - POLLAKIURIA [None]
